FAERS Safety Report 15426766 (Version 2)
Quarter: 2018Q4

REPORT INFORMATION
  Report Type: Report from Study
  Country: US (occurrence: US)
  Receive Date: 20180925
  Receipt Date: 20181019
  Transmission Date: 20190204
  Serious: Yes (Other)
  Sender: FDA-Public Use
  Company Number: US-TEVA-2018-US-957633

PATIENT

DRUGS (3)
  1. PREDNISONE. [Suspect]
     Active Substance: PREDNISONE
     Indication: PREMEDICATION
     Dosage: ADMINISTERED 13, 7, AND 1 HOUR PRIOR TO THE CONTRAST MATERIAL
     Route: 048
  2. DIPHENHYDRAMINE. [Suspect]
     Active Substance: DIPHENHYDRAMINE
     Indication: PREMEDICATION
     Dosage: ADMINISTERED AN HOUR PRIOR TO THE CONTRAST MATERIAL
     Route: 048
  3. GADOBENATE DIMEGLUMINE [Suspect]
     Active Substance: GADOBENATE DIMEGLUMINE
     Route: 042

REACTIONS (4)
  - Drug ineffective [Unknown]
  - Wheezing [Unknown]
  - Stridor [Unknown]
  - Tachycardia [Unknown]
